FAERS Safety Report 5210502-6 (Version None)
Quarter: 2007Q1

REPORT INFORMATION
  Report Type: 
  Country: None (occurrence: None)
  Receive Date: 20070117
  Receipt Date: 20070112
  Transmission Date: 20070707
  Serious: Yes (Death, Hospitalization)
  Sender: FDA-Public Use
  Company Number: 2007UW00717

PATIENT
  Age: 78 Year
  Sex: Male
  Weight: 77.1 kg

DRUGS (2)
  1. SEROQUEL [Suspect]
     Indication: AGGRESSION
     Dosage: ONE OR TWO TABLETS
     Route: 048
  2. ATIVAN [Concomitant]

REACTIONS (3)
  - DEATH [None]
  - PNEUMONIA ASPIRATION [None]
  - SOMNOLENCE [None]
